FAERS Safety Report 11318895 (Version 3)
Quarter: 2016Q3

REPORT INFORMATION
  Report Type: Spontaneous
  Country: US (occurrence: US)
  Receive Date: 20150729
  Receipt Date: 20160831
  Transmission Date: 20161109
  Serious: No
  Sender: FDA-Public Use
  Company Number: US-ACTELION PHARMACEUTICALS US, INC.-A-NJ2015-118451

PATIENT
  Age: 68 Year
  Sex: Male

DRUGS (9)
  1. IMURAN [Concomitant]
     Active Substance: AZATHIOPRINE
     Dosage: 350 MG, QD
  2. PREDNISONE. [Concomitant]
     Active Substance: PREDNISONE
     Dosage: 10 MG, QD
     Dates: start: 2014
  3. OPSUMIT [Suspect]
     Active Substance: MACITENTAN
     Indication: PULMONARY ARTERIAL HYPERTENSION
     Dosage: 10 MG, QD
     Route: 048
     Dates: start: 20140717
  4. TYVASO [Suspect]
     Active Substance: TREPROSTINIL
     Indication: PRODUCT USED FOR UNKNOWN INDICATION
     Dosage: UNK
     Route: 055
     Dates: end: 201506
  5. OXYCODONE AND ACETAMINOPHEN [Concomitant]
     Active Substance: ACETAMINOPHEN\OXYCODONE HYDROCHLORIDE
     Dosage: 5/325 MG, UNK
     Dates: start: 201601
  6. ADCIRCA [Concomitant]
     Active Substance: TADALAFIL
  7. ADVIL [Concomitant]
     Active Substance: IBUPROFEN
     Dosage: 200 MG, PRN
  8. LEXAPRO [Concomitant]
     Active Substance: ESCITALOPRAM OXALATE
     Dosage: 5 MG, QD
     Dates: start: 2015
  9. RIOCIGUAT [Concomitant]
     Active Substance: RIOCIGUAT
     Dosage: 0.5 MG, TID
     Dates: start: 201607

REACTIONS (12)
  - Dizziness [Unknown]
  - Dyspnoea [Unknown]
  - Flatulence [Unknown]
  - Pain in jaw [Unknown]
  - Gallbladder disorder [Recovering/Resolving]
  - Nausea [Unknown]
  - Fatigue [Unknown]
  - Blood pressure increased [Unknown]
  - Cough [Unknown]
  - Headache [Unknown]
  - Rales [Unknown]
  - Dyspepsia [Unknown]

NARRATIVE: CASE EVENT DATE: 201601
